FAERS Safety Report 15755294 (Version 1)
Quarter: 2018Q4

REPORT INFORMATION
  Report Type: Spontaneous
  Country: FR (occurrence: FR)
  Receive Date: 20181224
  Receipt Date: 20181224
  Transmission Date: 20190205
  Serious: Yes (Life-Threatening, Hospitalization, Other)
  Sender: FDA-Public Use
  Company Number: FR-AUROBINDO-AUR-APL-2018-061232

PATIENT
  Age: 42 Year
  Sex: Male
  Weight: 80 kg

DRUGS (3)
  1. LIDOCAINE. [Suspect]
     Active Substance: LIDOCAINE
     Indication: ANAESTHESIA
     Dosage: 60 MILLIGRAM
     Route: 042
     Dates: start: 20181114
  2. DIPRIVAN [Suspect]
     Active Substance: PROPOFOL
     Indication: ANAESTHESIA
     Dosage: 200 MILLIGRAM
     Route: 042
     Dates: start: 20181114
  3. CELOCURINE /00057704/ [Suspect]
     Active Substance: SUCCINYLCHOLINE IODIDE
     Indication: ANAESTHESIA
     Dosage: 80 MILLIGRAM
     Route: 042
     Dates: start: 20181114

REACTIONS (3)
  - Circulatory collapse [Recovered/Resolved]
  - Urticaria [Recovered/Resolved]
  - Tachycardia [Recovered/Resolved]

NARRATIVE: CASE EVENT DATE: 20181114
